FAERS Safety Report 11048636 (Version 1)
Quarter: 2015Q2

REPORT INFORMATION
  Report Type: Spontaneous
  Country: DE (occurrence: DE)
  Receive Date: 20150420
  Receipt Date: 20150420
  Transmission Date: 20150821
  Serious: Yes (Hospitalization, Other)
  Sender: FDA-Public Use
  Company Number: DE-GLAXOSMITHKLINE-DE2015GSK052179

PATIENT
  Age: 63 Year
  Sex: Male
  Weight: 105 kg

DRUGS (2)
  1. VEMURAFENIB [Concomitant]
     Active Substance: VEMURAFENIB
     Indication: MALIGNANT MELANOMA
     Dosage: 720 MG, BID
     Dates: start: 201203, end: 201407
  2. TAFINLAR [Suspect]
     Active Substance: DABRAFENIB MESYLATE
     Indication: MALIGNANT MELANOMA
     Dosage: 150 MG, BID
     Dates: start: 201407

REACTIONS (1)
  - Angiosarcoma [Unknown]

NARRATIVE: CASE EVENT DATE: 20150313
